FAERS Safety Report 6583740-8 (Version None)
Quarter: 2010Q1

REPORT INFORMATION
  Report Type: 
  Country: None (occurrence: None)
  Receive Date: 20100216
  Receipt Date: 20100215
  Transmission Date: 20100710
  Serious: Yes (Death, Hospitalization)
  Sender: FDA-Public Use
  Company Number: DE-MERCK-1002DEU00077

PATIENT
  Age: 82 Year
  Sex: Female

DRUGS (15)
  1. ZOCOR [Suspect]
     Indication: HYPERCHOLESTEROLAEMIA
     Route: 048
     Dates: start: 20081004
  2. BISOHEXAL [Suspect]
     Indication: HYPERTENSION
     Route: 048
     Dates: start: 20081004
  3. ASPIRIN [Suspect]
     Indication: THROMBOSIS PROPHYLAXIS
     Route: 048
     Dates: start: 20081004
  4. PLAVIX [Suspect]
     Indication: THROMBOSIS PROPHYLAXIS
     Route: 048
     Dates: start: 20081004
  5. IRENAT [Suspect]
     Indication: HYPERTHYROIDISM
     Route: 048
     Dates: start: 20081006, end: 20081020
  6. CARBIMAZOLE [Suspect]
     Indication: HYPERTHYROIDISM
     Route: 048
     Dates: start: 20081006
  7. EMBOLEX [Suspect]
     Indication: THROMBOSIS PROPHYLAXIS
     Route: 051
     Dates: start: 20081007, end: 20081024
  8. EUNERPAN [Suspect]
     Indication: PSYCHOTIC DISORDER
     Route: 048
     Dates: start: 20081007, end: 20081027
  9. RAMIPRIL [Suspect]
     Indication: HYPERTENSION
     Route: 048
     Dates: start: 20081007
  10. TOREM [Suspect]
     Indication: HYPERTENSION
     Route: 048
     Dates: start: 20081007
  11. PANTOZOL [Suspect]
     Indication: PROPHYLAXIS AGAINST GASTROINTESTINAL ULCER
     Route: 048
     Dates: start: 20081007
  12. KALINOR [Concomitant]
     Indication: HYPOKALAEMIA
     Route: 048
     Dates: start: 20081008, end: 20081024
  13. KALINOR [Concomitant]
     Route: 048
     Dates: start: 20081028
  14. CLONT [Suspect]
     Indication: CHOLECYSTITIS
     Route: 048
     Dates: start: 20081009, end: 20081018
  15. CEFPODOXIME PROXETIL [Suspect]
     Indication: CHOLECYSTITIS
     Route: 048
     Dates: start: 20081011, end: 20081018

REACTIONS (2)
  - CHOLECYSTITIS [None]
  - STEVENS-JOHNSON SYNDROME [None]
